FAERS Safety Report 4724469-8 (Version None)
Quarter: 2005Q3

REPORT INFORMATION
  Report Type: 
  Country: None (occurrence: None)
  Receive Date: 20050726
  Receipt Date: 20050606
  Transmission Date: 20060218
  Serious: Yes (Other)
  Sender: FDA-Public Use
  Company Number: 2005GB01122

PATIENT
  Age: 17635 Day
  Sex: Male
  Weight: 93.5 kg

DRUGS (5)
  1. CRESTOR [Suspect]
     Indication: HYPERCHOLESTEROLAEMIA
     Route: 048
     Dates: start: 20050415, end: 20050516
  2. DEXTROSE [Concomitant]
  3. HYPURIN BOVINE NEUTRAL [Concomitant]
  4. ISOPHANE INSULIN [Concomitant]
     Dosage: AS DIRECTED
  5. NEUTRAL INSULIN [Concomitant]

REACTIONS (4)
  - ARTHRALGIA [None]
  - BACK PAIN [None]
  - CHEST WALL PAIN [None]
  - PAIN IN EXTREMITY [None]
